FAERS Safety Report 6180385-9 (Version None)
Quarter: 2009Q2

REPORT INFORMATION
  Report Type: 
  Country: None (occurrence: None)
  Receive Date: 20090506
  Receipt Date: 20090423
  Transmission Date: 20091009
  Serious: Yes (Other)
  Sender: FDA-Public Use
  Company Number: US-PFIZER INC-2009190380

PATIENT
  Sex: Female
  Weight: 63.492 kg

DRUGS (4)
  1. NEURONTIN [Suspect]
     Indication: ABNORMAL BEHAVIOUR
     Dosage: 600 MG, 2X/DAY
     Route: 048
     Dates: start: 20090101
  2. NEURONTIN [Suspect]
     Indication: EMOTIONAL DISORDER
  3. SEROQUEL [Concomitant]
     Dosage: 600 MG, 2X/DAY
     Route: 048
  4. ABILIFY [Concomitant]

REACTIONS (4)
  - FULL BLOOD COUNT DECREASED [None]
  - PLATELET COUNT DECREASED [None]
  - RED BLOOD CELL COUNT DECREASED [None]
  - WHITE BLOOD CELL COUNT DECREASED [None]
